FAERS Safety Report 4741028-1 (Version None)
Quarter: 2005Q3

REPORT INFORMATION
  Report Type: 
  Country: None (occurrence: None)
  Receive Date: 20050729
  Receipt Date: 20050225
  Transmission Date: 20060218
  Serious: Yes (Other)
  Sender: FDA-Public Use
  Company Number: 2005S1000841

PATIENT
  Age: 73 Year
  Sex: Female
  Weight: 61.6892 kg

DRUGS (11)
  1. APOKYN [Suspect]
     Indication: PARKINSON'S DISEASE
     Dosage: 0.3 ML;PRN;SC
     Dates: start: 20050223
  2. STELEVO [Concomitant]
  3. SARIZOTAN [Concomitant]
  4. CARBIDOPA AND LEVODOPA [Concomitant]
  5. AMANTADINE [Concomitant]
  6. SERTRALINE HYDROCHLORIDE [Concomitant]
  7. MIRTAZAPINE [Concomitant]
  8. ESTOGENS CONJUGATED [Concomitant]
  9. TRIMETHOBENZAMIDE HCL [Concomitant]
  10. PERGOLIDE MESYLATE [Concomitant]
  11. PARCOPA [Concomitant]

REACTIONS (1)
  - PANIC ATTACK [None]
